FAERS Safety Report 25191481 (Version 1)
Quarter: 2025Q2

REPORT INFORMATION
  Report Type: Spontaneous
  Country: US (occurrence: None)
  Receive Date: 20250412
  Receipt Date: 20250412
  Transmission Date: 20250717
  Serious: Yes (Other)
  Sender: FDA-CTU
  Company Number: None

PATIENT
  Age: 70 Year
  Sex: Female

DRUGS (1)
  1. FLUCONAZOLE [Suspect]
     Active Substance: FLUCONAZOLE

REACTIONS (4)
  - Dermatitis [None]
  - Pruritus [None]
  - Blood pressure increased [None]
  - Lymph node palpable [None]

NARRATIVE: CASE EVENT DATE: 20250409
